FAERS Safety Report 4685081-2 (Version None)
Quarter: 2005Q2

REPORT INFORMATION
  Report Type: 
  Country: None (occurrence: None)
  Receive Date: 20050608
  Receipt Date: 20050603
  Transmission Date: 20051028
  Serious: Yes (Life-Threatening, Hospitalization)
  Sender: FDA-Public Use
  Company Number: 200511109DE

PATIENT
  Age: 47 Year
  Sex: Female

DRUGS (11)
  1. TAXOTERE [Suspect]
     Indication: BREAST CANCER
     Route: 041
     Dates: start: 20050203, end: 20050428
  2. DEXAMETHASONE [Concomitant]
     Indication: VOMITING
     Route: 041
     Dates: start: 20050203, end: 20050428
  3. SOSTRIL [Concomitant]
     Indication: VOMITING
     Route: 041
     Dates: start: 20050203, end: 20050428
  4. CLEMASTINE FUMARATE [Concomitant]
     Indication: VOMITING
     Route: 041
     Dates: start: 20050203, end: 20050428
  5. KEVATRIL [Concomitant]
     Indication: VOMITING
     Dates: start: 20050203, end: 20050428
  6. EPIRUBICIN [Concomitant]
     Indication: BREAST CANCER
     Route: 040
     Dates: start: 20050203, end: 20050428
  7. CYCLOPHOSPHAMIDE [Concomitant]
     Indication: BREAST CANCER
     Route: 041
     Dates: start: 20050203, end: 20050428
  8. NAVOBAN [Concomitant]
     Indication: VOMITING
     Route: 048
     Dates: start: 20050203, end: 20050428
  9. MCP - TROPFEN [Concomitant]
     Indication: VOMITING
     Route: 048
     Dates: start: 20050203, end: 20050428
  10. NEULASTA [Concomitant]
     Route: 058
     Dates: start: 20050203, end: 20050428
  11. TRAMADOL HCL [Concomitant]
     Indication: PAIN
     Route: 048
     Dates: start: 20050224, end: 20050428

REACTIONS (1)
  - EMBOLISM [None]
